FAERS Safety Report 9868188 (Version 2)
Quarter: 2014Q1

REPORT INFORMATION
  Report Type: Spontaneous
  Country: IT (occurrence: IT)
  Receive Date: 20140204
  Receipt Date: 20140211
  Transmission Date: 20141002
  Serious: Yes (Other)
  Sender: FDA-Public Use
  Company Number: PHHY2014IT012283

PATIENT
  Sex: Female

DRUGS (3)
  1. CLOZAPINE [Suspect]
     Indication: INTENTIONAL SELF-INJURY
     Dosage: 2000 MG, TOTAL
     Route: 048
     Dates: start: 20140124, end: 20140124
  2. HALDOL [Concomitant]
     Dosage: UNK
  3. LEXOTAN [Concomitant]
     Dosage: UNK

REACTIONS (4)
  - Coma [Not Recovered/Not Resolved]
  - Intentional self-injury [Not Recovered/Not Resolved]
  - Electrocardiogram QT prolonged [Not Recovered/Not Resolved]
  - Sinus tachycardia [Not Recovered/Not Resolved]
